FAERS Safety Report 6760175-6 (Version None)
Quarter: 2010Q2

REPORT INFORMATION
  Report Type: 
  Country: None (occurrence: None)
  Receive Date: 20100608
  Receipt Date: 20100529
  Transmission Date: 20101027
  Serious: Yes (Hospitalization)
  Sender: FDA-Public Use
  Company Number: ZA-ALLERGAN-1007157US

PATIENT
  Age: 59 Year
  Sex: Female

DRUGS (8)
  1. BLINDED DEXAMETHASONE 0.35 MG IMP [Suspect]
     Indication: DIABETIC RETINAL OEDEMA
     Dosage: UNK
     Dates: start: 20090820
  2. BLINDED DEXAMETHASONE 0.7 MG IMP [Suspect]
     Indication: DIABETIC RETINAL OEDEMA
     Dosage: UNK
     Dates: start: 20090820
  3. BLINDED INTRAVITREAL SHAM [Suspect]
     Indication: DIABETIC RETINAL OEDEMA
     Dosage: UNK
     Dates: start: 20090820
  4. POSUDEX / PLACEBO [Suspect]
     Dosage: UNK
     Dates: start: 20080826
  5. METFORMIN HCL [Concomitant]
     Indication: DIABETES MELLITUS
     Dosage: UNK
     Route: 048
     Dates: start: 19950101
  6. ACTRAPHANE [Concomitant]
     Indication: DIABETES MELLITUS
     Dosage: 32 UNITS, UNK
     Route: 058
     Dates: start: 20030101
  7. HYDROCHLOROTHIAZIDE [Concomitant]
     Indication: HYPERTENSION
     Dosage: 25 MG, QD
     Route: 048
     Dates: start: 20050101
  8. JPHARMAPRESS [Concomitant]
     Indication: HYPERTENSION
     Dosage: 10 MG, UNK
     Route: 048
     Dates: start: 20050101

REACTIONS (1)
  - CATARACT SUBCAPSULAR [None]
